FAERS Safety Report 10660828 (Version 1)
Quarter: 2014Q4

REPORT INFORMATION
  Report Type: Spontaneous
  Country: DE (occurrence: DE)
  Receive Date: 20141217
  Receipt Date: 20141217
  Transmission Date: 20150529
  Serious: Yes (Hospitalization, Other)
  Sender: FDA-Public Use
  Company Number: DE-MYLANLABS-2014M1013812

PATIENT

DRUGS (2)
  1. CITALOPRAM [Suspect]
     Active Substance: CITALOPRAM HYDROBROMIDE
     Dosage: 460 MG, TOTAL; 23 TABLETS ONCE
     Route: 048
     Dates: start: 20141206, end: 20141206
  2. ALCOHOL. [Suspect]
     Active Substance: ALCOHOL
     Dosage: UNK
     Route: 048
     Dates: start: 20141206, end: 20141206

REACTIONS (3)
  - Overdose [Unknown]
  - Alcohol use [Unknown]
  - Suicide attempt [Unknown]

NARRATIVE: CASE EVENT DATE: 20141206
